FAERS Safety Report 10022388 (Version 1)
Quarter: 2014Q1

REPORT INFORMATION
  Report Type: Spontaneous
  Country: US (occurrence: US)
  Receive Date: 20140319
  Receipt Date: 20140319
  Transmission Date: 20141002
  Serious: Yes (Disabling)
  Sender: FDA-Public Use
  Company Number: US-PFIZER INC-2014079175

PATIENT
  Age: 39 Year
  Sex: Female

DRUGS (18)
  1. INDERAL LA [Suspect]
     Indication: HYPERTENSION
     Dosage: UNSPECIFIED DOSE, TWICE
     Route: 048
     Dates: start: 1984
  2. TRAZODONE [Concomitant]
     Dosage: 100 MG, UNK
  3. HYDROCHLOROTHIAZIDE [Concomitant]
     Dosage: 25 MG, UNK
  4. LANTUS [Concomitant]
     Dosage: UNK
  5. DETROL LA [Concomitant]
     Dosage: UNK
  6. GLYBURIDE [Concomitant]
     Dosage: 5 MG, UNK
  7. DIGOXIN [Concomitant]
     Dosage: 0.125 MG, UNK
  8. HYDROCODONE W/ACETAMINOPHEN [Concomitant]
     Dosage: 5-325MG
  9. CITALOPRAM [Concomitant]
     Dosage: 20 MG, UNK
  10. CLONIDINE [Concomitant]
     Dosage: 0.1 MG, UNK
  11. SIMVASTATIN [Concomitant]
     Dosage: 20 MG, UNK
  12. HYOSCYAMINE [Concomitant]
     Dosage: 0.125 MG, UNK
  13. FENOFIBRATE [Concomitant]
     Dosage: 145 MG, UNK
  14. ETODOLAC [Concomitant]
     Dosage: 400 MG, UNK
  15. BUSPIRONE [Concomitant]
     Dosage: 5 MG, UNK
  16. AVAPRO [Concomitant]
     Dosage: 150 MG, UNK
  17. ASPIRIN [Concomitant]
     Dosage: 81 MG, UNK
  18. ALBUTEROL [Concomitant]
     Dosage: 90MCG/ACT

REACTIONS (4)
  - Vision blurred [Not Recovered/Not Resolved]
  - Blindness transient [Recovered/Resolved]
  - Insomnia [Not Recovered/Not Resolved]
  - Photopsia [Unknown]
